FAERS Safety Report 7642177-0 (Version None)
Quarter: 2011Q3

REPORT INFORMATION
  Report Type: 
  Country: None (occurrence: None)
  Receive Date: 20110727
  Receipt Date: 20110727
  Transmission Date: 20111222
  Serious: Yes (Other)
  Sender: FDA-Public Use
  Company Number: None

PATIENT
  Sex: Female

DRUGS (2)
  1. LAMICTAL [Suspect]
     Dosage: 1 QD 1 1/2 MONTHS
  2. ELMIRON [Suspect]
     Dosage: 2 CAPSULES 2X DAY DAILY FOR 6 YRS

REACTIONS (1)
  - ALOPECIA [None]
